FAERS Safety Report 5318097-3 (Version None)
Quarter: 2007Q1

REPORT INFORMATION
  Report Type: 
  Country: None (occurrence: None)
  Receive Date: 20070207
  Receipt Date: 20070123
  Transmission Date: 20070707
  Serious: No
  Sender: FDA-Public Use
  Company Number: SPV1-2007-00326

PATIENT
  Age: 83 Year
  Sex: Male
  Weight: 77 kg

DRUGS (10)
  1. FOSRENOL [Suspect]
     Indication: HYPERPHOSPHATAEMIA
     Dosage: 1000 MG, 3X/DAY:TID
     Dates: start: 20061101
  2. CARNITOR (LEVOCARNITINE) [Concomitant]
  3. EPOGEN [Concomitant]
  4. ZEMPLAR [Concomitant]
  5. FOLTX /01079901/ (CYANOCOBALAMIN, FOLIC ACID, PYRIDOXINE HYDROCHLORIDE [Concomitant]
  6. RESTORIL /00393701/ (TEMAZEPAM) [Concomitant]
  7. NEPHROCAPS /01041101/ (FOLIC ACID, VITAMINS NOS) [Concomitant]
  8. CLONIDINE [Concomitant]
  9. FELODIPINE [Concomitant]
  10. KLONOPIN [Concomitant]

REACTIONS (1)
  - BLOOD GLUCOSE INCREASED [None]
